FAERS Safety Report 6359188-8 (Version None)
Quarter: 2009Q3

REPORT INFORMATION
  Report Type: 
  Country: None (occurrence: None)
  Receive Date: 20090917
  Receipt Date: 20090911
  Transmission Date: 20100115
  Serious: Yes (Other)
  Sender: FDA-Public Use
  Company Number: US-JNJFOC-20090708582

PATIENT
  Sex: Female
  Weight: 58.97 kg

DRUGS (5)
  1. MONISTAT 1 COMBINATION PACK DAY OR NIGHT [Suspect]
     Route: 067
  2. MONISTAT 1 COMBINATION PACK DAY OR NIGHT [Suspect]
     Indication: FUNGAL INFECTION
     Route: 067
  3. MONISTAT 1 COMBINATION PACK DAY OR NIGHT [Suspect]
     Route: 061
  4. MONISTAT 1 COMBINATION PACK DAY OR NIGHT [Suspect]
     Route: 061
  5. PROTONIX [Concomitant]

REACTIONS (3)
  - CAUSTIC INJURY [None]
  - PRODUCT CONTAMINATION [None]
  - SENSORY DISTURBANCE [None]
